FAERS Safety Report 8266015 (Version 6)
Quarter: 2013Q1

REPORT INFORMATION
  Report Type: Spontaneous
  Country: GB (occurrence: GB)
  Receive Date: 20111129
  Receipt Date: 20130329
  Transmission Date: 20140127
  Serious: Yes (Death, Hospitalization)
  Sender: FDA-Public Use
  Company Number: GB-JNJFOC-20111109879

PATIENT
  Age: 60 Year
  Sex: Male
  Weight: 128 kg

DRUGS (10)
  1. STELARA [Suspect]
     Indication: PSORIASIS
     Route: 058
  2. STELARA [Suspect]
     Indication: PSORIASIS
     Route: 058
     Dates: start: 20110905
  3. SIMVASTATIN [Concomitant]
     Indication: BLOOD CHOLESTEROL INCREASED
     Route: 065
  4. ASPIRIN [Concomitant]
     Indication: ANGINA PECTORIS
     Route: 065
  5. LOSARTAN [Concomitant]
     Indication: HYPERTENSION
     Route: 065
  6. AMLODIPINE [Concomitant]
     Indication: HYPERTENSION
     Route: 065
  7. OMEPRAZOLE [Concomitant]
     Indication: PRODUCT USED FOR UNKNOWN INDICATION
     Route: 065
  8. PIOGLITAZONE [Concomitant]
     Indication: PRODUCT USED FOR UNKNOWN INDICATION
     Route: 065
  9. METFORMIN [Concomitant]
     Indication: PRODUCT USED FOR UNKNOWN INDICATION
     Route: 065
  10. GLICLAZIDE [Concomitant]
     Indication: DIABETES MELLITUS
     Route: 065

REACTIONS (8)
  - Colitis ischaemic [Fatal]
  - Hypertensive heart disease [Fatal]
  - Pulmonary embolism [Fatal]
  - Peritonitis [Fatal]
  - Deep vein thrombosis [Fatal]
  - Chronic obstructive pulmonary disease [Fatal]
  - Diabetes mellitus [Fatal]
  - Hepatic cirrhosis [Fatal]
